FAERS Safety Report 17973963 (Version 1)
Quarter: 2020Q3

REPORT INFORMATION
  Report Type: Spontaneous
  Country: US (occurrence: US)
  Receive Date: 20200702
  Receipt Date: 20200702
  Transmission Date: 20201103
  Serious: Yes (Hospitalization)
  Sender: FDA-Public Use
  Company Number: None

PATIENT
  Sex: Female

DRUGS (27)
  1. CEPHALEXIN. [Concomitant]
     Active Substance: CEPHALEXIN
  2. IBUPROFEN. [Concomitant]
     Active Substance: IBUPROFEN
  3. AMOXICILLIN. [Concomitant]
     Active Substance: AMOXICILLIN
  4. TRAMADOL HCL [Concomitant]
     Active Substance: TRAMADOL HYDROCHLORIDE
  5. CEFIDINIR [Concomitant]
  6. CIPROFLOXACIN. [Concomitant]
     Active Substance: CIPROFLOXACIN
  7. NARCAN [Concomitant]
     Active Substance: NALOXONE HYDROCHLORIDE
  8. OXYCODONE AND ACETAMINOPHEN [Concomitant]
     Active Substance: ACETAMINOPHEN\OXYCODONE HYDROCHLORIDE
  9. VIRTUSSIN AC [Concomitant]
     Active Substance: CODEINE PHOSPHATE\GUAIFENESIN
  10. AMLODIPINE [Concomitant]
     Active Substance: AMLODIPINE BESYLATE
  11. CYANOCOBALAM [Concomitant]
     Active Substance: CYANOCOBALAMIN
  12. HYDROXCHLOR [Concomitant]
  13. AZITHROMYCIN ANHYDROUS. [Concomitant]
     Active Substance: AZITHROMYCIN ANHYDROUS
  14. FLUCONAZOLE. [Concomitant]
     Active Substance: FLUCONAZOLE
  15. GAVILYTE G [Concomitant]
     Active Substance: POLYETHYLENE GLYCOL 3350\POTASSIUM CHLORIDE\SODIUM BICARBONATE\SODIUM CHLORIDE\SODIUM SULFATE ANHYDROUS
  16. HYDROCO/APAP [Concomitant]
     Active Substance: ACETAMINOPHEN\HYDROCODONE
  17. ORPHENADRINE [Concomitant]
     Active Substance: ORPHENADRINE
  18. ROPINIROLE. [Concomitant]
     Active Substance: ROPINIROLE
  19. ALBUTEROL AER [Concomitant]
  20. DULOXETINE. [Concomitant]
     Active Substance: DULOXETINE
  21. LISINOPRIL. [Concomitant]
     Active Substance: LISINOPRIL
  22. VITAMIN D3 [Concomitant]
     Active Substance: CHOLECALCIFEROL
  23. BENLYSTA [Suspect]
     Active Substance: BELIMUMAB
     Indication: SYSTEMIC LUPUS ERYTHEMATOSUS
     Route: 058
     Dates: start: 20200310
  24. PREDNISONE. [Concomitant]
     Active Substance: PREDNISONE
  25. ONDANSETRON [Concomitant]
     Active Substance: ONDANSETRON
  26. XARELTO [Concomitant]
     Active Substance: RIVAROXABAN
  27. ZOLPIDEM [Concomitant]
     Active Substance: ZOLPIDEM TARTRATE

REACTIONS (2)
  - Therapy interrupted [None]
  - Condition aggravated [None]
